FAERS Safety Report 17041703 (Version 1)
Quarter: 2019Q4

REPORT INFORMATION
  Report Type: Spontaneous
  Country: US (occurrence: US)
  Receive Date: 20191118
  Receipt Date: 20191118
  Transmission Date: 20200122
  Serious: No
  Sender: FDA-Public Use
  Company Number: US-HORIZON-PRO-0250-2019

PATIENT
  Age: 40 Year
  Sex: Female

DRUGS (4)
  1. PROCYSBI [Suspect]
     Active Substance: CYSTEAMINE BITARTRATE
     Indication: AMINO ACID METABOLISM DISORDER
     Dosage: 1000MG EVERY 12 HOURS
     Route: 048
  2. LEVEMIR [Concomitant]
     Active Substance: INSULIN DETEMIR
     Dosage: 100/ML VIAL
  3. LYRICA [Concomitant]
     Active Substance: PREGABALIN
     Dosage: 50MG
  4. NOVOLIN R [Concomitant]
     Active Substance: INSULIN HUMAN
     Dosage: 100/ML VIAL

REACTIONS (3)
  - Vomiting [Unknown]
  - Malaise [Unknown]
  - Therapy cessation [Unknown]
